FAERS Safety Report 9041073 (Version 1)
Quarter: 2013Q1

REPORT INFORMATION
  Report Type: Spontaneous
  Country: US (occurrence: None)
  Receive Date: 20130124
  Receipt Date: 20130124
  Transmission Date: 20140127
  Serious: Yes (Other)
  Sender: FDA-Public Use
  Company Number: None

PATIENT
  Age: 67 Year
  Sex: Male
  Weight: 90.72 kg

DRUGS (1)
  1. LEVOFLOXACIN [Suspect]
     Indication: SINUSITIS
     Dosage: 500 MG  DAILY  10 DAYS
     Dates: start: 20121128, end: 20121206

REACTIONS (5)
  - Tendon pain [None]
  - Musculoskeletal pain [None]
  - Back pain [None]
  - Arthralgia [None]
  - Arthralgia [None]
